FAERS Safety Report 7945778-5 (Version None)
Quarter: 2011Q4

REPORT INFORMATION
  Report Type: 
  Country: None (occurrence: None)
  Receive Date: 20111122
  Receipt Date: 20111108
  Transmission Date: 20120403
  Serious: Yes (Death, Life-Threatening, Hospitalization, Other)
  Sender: FDA-Public Use
  Company Number: 2009AL000900

PATIENT
  Age: 82 Year
  Sex: Female

DRUGS (32)
  1. LEXAPRO [Concomitant]
  2. BETAPACE [Concomitant]
  3. CHONDROITIN SULFATE [Concomitant]
  4. BUSPIRONE [Concomitant]
  5. POTASSIUM ACETATE [Concomitant]
  6. SULFACET [Concomitant]
  7. LISINOPRIL [Concomitant]
  8. ANTIBIOTICS [Concomitant]
  9. TRIAMTERINE [Concomitant]
  10. COUMADIN [Concomitant]
  11. LEVOTHRYOID [Concomitant]
  12. ZESTRIL [Concomitant]
  13. DOPAMINE HCL [Concomitant]
  14. CARDIZEM [Concomitant]
  15. LASIX [Concomitant]
  16. PREDNISONE TAB [Concomitant]
  17. KAY CIEL DURA-TABS [Concomitant]
  18. LIPITOR [Concomitant]
  19. LEVOXYL [Concomitant]
  20. MAXZIDE [Concomitant]
  21. NORVASC [Concomitant]
  22. ATROPINE [Concomitant]
  23. EPINEPHRINE [Concomitant]
  24. DIGOXIN [Suspect]
     Indication: ATRIAL FIBRILLATION
     Dosage: 500 MCG;X1;IV
     Route: 042
     Dates: start: 20070727, end: 20071112
  25. DIGOXIN [Suspect]
     Indication: CARDIAC FAILURE CONGESTIVE
     Dosage: 500 MCG;X1;IV
     Route: 042
     Dates: start: 20070727, end: 20071112
  26. EVISTA [Concomitant]
  27. SOTALOL HCL [Concomitant]
  28. FLONASE [Concomitant]
  29. CELEBREX [Concomitant]
  30. PROTONIX [Concomitant]
  31. AMLODIPINE [Concomitant]
  32. STEROIDS [Concomitant]

REACTIONS (67)
  - FAMILY STRESS [None]
  - LEFT VENTRICULAR HYPERTROPHY [None]
  - HYPOXIC-ISCHAEMIC ENCEPHALOPATHY [None]
  - ATRIAL FIBRILLATION [None]
  - ELECTROLYTE IMBALANCE [None]
  - ORTHOSTATIC HYPOTENSION [None]
  - MUSCULOSKELETAL PAIN [None]
  - MYOCARDIAL ISCHAEMIA [None]
  - ELECTROCARDIOGRAM ST SEGMENT DEPRESSION [None]
  - IMPAIRED HEALING [None]
  - MENOPAUSE [None]
  - PULSELESS ELECTRICAL ACTIVITY [None]
  - VENTRICULAR DYSFUNCTION [None]
  - PNEUMONIA [None]
  - PAIN [None]
  - TRICUSPID VALVE INCOMPETENCE [None]
  - CELLULITIS [None]
  - LUNG CONSOLIDATION [None]
  - AORTIC VALVE SCLEROSIS [None]
  - MULTIPLE INJURIES [None]
  - DIZZINESS [None]
  - PALPITATIONS [None]
  - FALL [None]
  - SOFT TISSUE NECROSIS [None]
  - ARTHRALGIA [None]
  - DEHYDRATION [None]
  - URINARY TRACT INFECTION [None]
  - LEFT ATRIAL DILATATION [None]
  - GENERAL PHYSICAL HEALTH DETERIORATION [None]
  - LACERATION [None]
  - SCAR [None]
  - NEUROLOGICAL DECOMPENSATION [None]
  - PLEURAL EFFUSION [None]
  - SYNCOPE [None]
  - HYPERGLYCAEMIA [None]
  - MITRAL VALVE CALCIFICATION [None]
  - LIMB INJURY [None]
  - STRESS [None]
  - ATELECTASIS [None]
  - CAROTID ARTERIOSCLEROSIS [None]
  - HIATUS HERNIA [None]
  - MITRAL VALVE INCOMPETENCE [None]
  - GASTRIC ULCER HAEMORRHAGE [None]
  - ANGINA PECTORIS [None]
  - SINUS BRADYCARDIA [None]
  - PULMONARY INFARCTION [None]
  - EMOTIONAL DISORDER [None]
  - CARDIO-RESPIRATORY ARREST [None]
  - CARDIAC FAILURE CONGESTIVE [None]
  - TROPONIN INCREASED [None]
  - HEART RATE IRREGULAR [None]
  - CARDIOACTIVE DRUG LEVEL DECREASED [None]
  - CONVULSION [None]
  - PULMONARY HYPERTENSION [None]
  - ECONOMIC PROBLEM [None]
  - SOCIAL PROBLEM [None]
  - EFFUSION [None]
  - LOSS OF CONSCIOUSNESS [None]
  - HYPOMAGNESAEMIA [None]
  - HAEMORRHAGIC ANAEMIA [None]
  - TOXICITY TO VARIOUS AGENTS [None]
  - WEIGHT INCREASED [None]
  - ACUTE PRERENAL FAILURE [None]
  - METABOLIC ACIDOSIS [None]
  - VERTEBRAL ARTERY OCCLUSION [None]
  - TACHYCARDIA [None]
  - CORONARY ARTERY DISEASE [None]
